FAERS Safety Report 23789551 (Version 1)
Quarter: 2024Q2

REPORT INFORMATION
  Report Type: Report from Study
  Country: DE (occurrence: DE)
  Receive Date: 20240426
  Receipt Date: 20240426
  Transmission Date: 20240716
  Serious: Yes (Hospitalization)
  Sender: FDA-Public Use
  Company Number: DE-TEVA-VS-3186982

PATIENT
  Age: 38 Year
  Sex: Female

DRUGS (1)
  1. COPAXONE [Suspect]
     Active Substance: GLATIRAMER ACETATE
     Indication: Multiple sclerosis
     Route: 065
     Dates: start: 201607, end: 201907

REACTIONS (2)
  - Squamous cell carcinoma of skin [Recovered/Resolved]
  - Cervix carcinoma stage 0 [Unknown]

NARRATIVE: CASE EVENT DATE: 20190701
